FAERS Safety Report 24306976 (Version 1)
Quarter: 2024Q3

REPORT INFORMATION
  Report Type: Spontaneous
  Country: CN (occurrence: CN)
  Receive Date: 20240911
  Receipt Date: 20240911
  Transmission Date: 20241016
  Serious: Yes (Hospitalization, Other)
  Sender: Steriscience PTE
  Company Number: CN-STERISCIENCE B.V.-2024-ST-001317

PATIENT
  Age: 57 Year
  Sex: Male

DRUGS (5)
  1. MEROPENEM [Suspect]
     Active Substance: MEROPENEM
     Indication: Antibiotic therapy
     Dosage: 1 GRAM, BID
     Route: 065
  2. MEROPENEM [Suspect]
     Active Substance: MEROPENEM
     Indication: Sepsis
  3. MEROPENEM [Suspect]
     Active Substance: MEROPENEM
     Indication: Streptococcal infection
  4. MEROPENEM [Suspect]
     Active Substance: MEROPENEM
     Indication: Meningitis
  5. CEFTRIAXONE [Concomitant]
     Active Substance: CEFTRIAXONE\CEFTRIAXONE SODIUM
     Indication: Product used for unknown indication
     Dosage: WITHIN 48 H OF ADMISSION
     Route: 065

REACTIONS (2)
  - Deafness bilateral [None]
  - Off label use [Unknown]
